FAERS Safety Report 7892716-X (Version None)
Quarter: 2011Q4

REPORT INFORMATION
  Report Type: 
  Country: None (occurrence: None)
  Receive Date: 20111104
  Receipt Date: 20111028
  Transmission Date: 20120403
  Serious: Yes (Life-Threatening, Other)
  Sender: FDA-Public Use
  Company Number: CA-US-EMD SERONO, INC.-7093094

PATIENT
  Sex: Female

DRUGS (4)
  1. REBIF [Suspect]
     Route: 058
     Dates: start: 20111002, end: 20111004
  2. ATIVAN [Concomitant]
     Indication: PANIC ATTACK
     Route: 048
     Dates: start: 20081101
  3. REBIF [Suspect]
     Indication: RELAPSING-REMITTING MULTIPLE SCLEROSIS
     Route: 058
     Dates: start: 20110615, end: 20110819
  4. ATIVAN [Concomitant]
     Indication: ANXIETY

REACTIONS (1)
  - SUICIDAL IDEATION [None]
